FAERS Safety Report 21066240 (Version 1)
Quarter: 2022Q3

REPORT INFORMATION
  Report Type: Spontaneous
  Country: US (occurrence: US)
  Receive Date: 20220711
  Receipt Date: 20220711
  Transmission Date: 20221027
  Serious: No
  Sender: FDA-Public Use
  Company Number: US-INTRA-CELLULAR THERAPIES, INC.-2022ICT00477

PATIENT
  Sex: Female

DRUGS (1)
  1. CAPLYTA [Suspect]
     Active Substance: LUMATEPERONE
     Indication: Post-traumatic stress disorder
     Dosage: 42 MG, 1X/DAY
     Route: 048
     Dates: start: 20220429, end: 20220503

REACTIONS (6)
  - Movement disorder [Unknown]
  - Feeling abnormal [Unknown]
  - Performance status decreased [Unknown]
  - Hyperglycaemia [Unknown]
  - Fatigue [Unknown]
  - Off label use [Recovered/Resolved]

NARRATIVE: CASE EVENT DATE: 20220101
